FAERS Safety Report 4577115-0 (Version None)
Quarter: 2005Q1

REPORT INFORMATION
  Report Type: 
  Country: None (occurrence: None)
  Receive Date: 20050208
  Receipt Date: 20050125
  Transmission Date: 20050727
  Serious: Yes (Death)
  Sender: FDA-Public Use
  Company Number: 2004S1003782

PATIENT
  Age: 48 Year
  Sex: Female

DRUGS (8)
  1. CLOZAPINE [Suspect]
     Indication: SCHIZOPHRENIA
     Dosage: 200MG Q AM + 500MG Q HS, ORAL
     Route: 048
  2. OMEPRAZOLE [Concomitant]
  3. FENTANYL [Concomitant]
  4. DEXAMETHAXONE [Concomitant]
  5. POTASSIUM CHLORIDE [Concomitant]
  6. VALPROIC ACID [Concomitant]
  7. HYOSCYAMINE [Concomitant]
  8. LORAZEPAM [Concomitant]

REACTIONS (1)
  - OROPHARYNGEAL CANCER STAGE UNSPECIFIED [None]
